FAERS Safety Report 20822203 (Version 7)
Quarter: 2024Q4

REPORT INFORMATION
  Report Type: Spontaneous
  Country: US (occurrence: US)
  Receive Date: 20220512
  Receipt Date: 20241230
  Transmission Date: 20250114
  Serious: Yes (Other)
  Sender: PFIZER
  Company Number: US-PFIZER INC-202200541780

PATIENT
  Age: 62 Year
  Sex: Male

DRUGS (1)
  1. XELJANZ XR [Suspect]
     Active Substance: TOFACITINIB CITRATE
     Dosage: 11 MG

REACTIONS (8)
  - Intellectual disability [Unknown]
  - Joint range of motion decreased [Unknown]
  - Joint swelling [Unknown]
  - Pain [Unknown]
  - Arthropathy [Unknown]
  - Mobility decreased [Unknown]
  - Immune system disorder [Unknown]
  - Memory impairment [Unknown]
